FAERS Safety Report 24106668 (Version 1)
Quarter: 2024Q3

REPORT INFORMATION
  Report Type: Spontaneous
  Country: MX (occurrence: MX)
  Receive Date: 20240717
  Receipt Date: 20240717
  Transmission Date: 20241016
  Serious: Yes (Other)
  Sender: ELI LILLY AND CO
  Company Number: MX-ELI_LILLY_AND_COMPANY-MX202407005779

PATIENT
  Age: 35 Year
  Sex: Female

DRUGS (1)
  1. VERZENIO [Suspect]
     Active Substance: ABEMACICLIB
     Indication: Product used for unknown indication
     Dosage: 150 MG, UNKNOWN
     Route: 065
     Dates: start: 202401

REACTIONS (1)
  - Acute hepatic failure [Unknown]
